FAERS Safety Report 14701106 (Version 1)
Quarter: 2018Q1

REPORT INFORMATION
  Report Type: Spontaneous
  Country: DE (occurrence: DE)
  Receive Date: 20180330
  Receipt Date: 20180330
  Transmission Date: 20180509
  Serious: Yes (Hospitalization)
  Sender: FDA-Public Use
  Company Number: DE-BAUSCH-BL-2018-007856

PATIENT
  Age: 71 Year
  Sex: Male

DRUGS (19)
  1. LORAZEPAM. [Interacting]
     Active Substance: LORAZEPAM
     Route: 065
     Dates: start: 20130116
  2. TAVOR (LORAZEPAM) [Interacting]
     Active Substance: LORAZEPAM
     Route: 065
     Dates: start: 20130109
  3. TAVOR (LORAZEPAM) [Interacting]
     Active Substance: LORAZEPAM
     Route: 065
     Dates: start: 20130110, end: 20130115
  4. OLANZAPINE. [Interacting]
     Active Substance: OLANZAPINE
     Indication: PRODUCT USED FOR UNKNOWN INDICATION
     Route: 065
     Dates: end: 20130108
  5. ABILIFY [Interacting]
     Active Substance: ARIPIPRAZOLE
     Route: 065
     Dates: start: 20130111
  6. AKINETON [Concomitant]
     Active Substance: BIPERIDEN HYDROCHLORIDE
     Indication: PRODUCT USED FOR UNKNOWN INDICATION
     Dates: start: 20130104, end: 20130109
  7. ABILIFY [Interacting]
     Active Substance: ARIPIPRAZOLE
     Indication: PRODUCT USED FOR UNKNOWN INDICATION
     Route: 065
     Dates: start: 20130104, end: 20130106
  8. TAVOR (LORAZEPAM) [Interacting]
     Active Substance: LORAZEPAM
     Indication: PRODUCT USED FOR UNKNOWN INDICATION
     Route: 065
     Dates: start: 20130103, end: 20130108
  9. ZYPREXA [Interacting]
     Active Substance: OLANZAPINE
     Indication: PRODUCT USED FOR UNKNOWN INDICATION
     Route: 065
     Dates: end: 20130108
  10. ABILIFY [Interacting]
     Active Substance: ARIPIPRAZOLE
     Route: 065
     Dates: start: 20130107, end: 20130109
  11. OLANZAPINE. [Interacting]
     Active Substance: OLANZAPINE
     Route: 065
     Dates: start: 20130109, end: 20130217
  12. ZYPREXA [Interacting]
     Active Substance: OLANZAPINE
     Route: 065
     Dates: start: 20130109, end: 20130217
  13. LORAZEPAM. [Suspect]
     Active Substance: LORAZEPAM
     Indication: PRODUCT USED FOR UNKNOWN INDICATION
     Route: 065
     Dates: start: 20130103, end: 20130108
  14. LORAZEPAM. [Interacting]
     Active Substance: LORAZEPAM
     Route: 065
     Dates: start: 20130110, end: 20130115
  15. ABILIFY [Interacting]
     Active Substance: ARIPIPRAZOLE
     Route: 065
     Dates: start: 20130110
  16. LORAZEPAM. [Interacting]
     Active Substance: LORAZEPAM
     Route: 065
     Dates: start: 20130109
  17. ABILIFY [Interacting]
     Active Substance: ARIPIPRAZOLE
     Route: 065
     Dates: start: 20130112, end: 20130116
  18. TAVOR (LORAZEPAM) [Interacting]
     Active Substance: LORAZEPAM
     Route: 065
     Dates: start: 20130116
  19. ERGENYL CHRONO [Concomitant]
     Active Substance: VALPROIC ACID
     Indication: PRODUCT USED FOR UNKNOWN INDICATION
     Dates: start: 20130103

REACTIONS (2)
  - Parkinsonism [Unknown]
  - Drug interaction [Unknown]

NARRATIVE: CASE EVENT DATE: 20130116
